FAERS Safety Report 16168439 (Version 4)
Quarter: 2021Q1

REPORT INFORMATION
  Report Type: Report from Study
  Country: JP (occurrence: JP)
  Receive Date: 20190408
  Receipt Date: 20210212
  Transmission Date: 20210419
  Serious: Yes (Hospitalization, Other)
  Sender: FDA-Public Use
  Company Number: JP-GLAXOSMITHKLINE-JP2019JPN042449

PATIENT
  Age: 5 Decade
  Sex: Male
  Weight: 60 kg

DRUGS (11)
  1. PARIET [Concomitant]
     Active Substance: RABEPRAZOLE SODIUM
     Indication: GASTRIC ULCER
     Dosage: 10 MG, 1D
  2. BELIMUMAB [Suspect]
     Active Substance: BELIMUMAB
     Indication: AUTOIMMUNE HAEMOLYTIC ANAEMIA
     Dosage: 10 MG/KG
     Route: 041
     Dates: start: 20181004, end: 20181004
  3. MEDROL [Suspect]
     Active Substance: METHYLPREDNISOLONE
     Indication: SYSTEMIC LUPUS ERYTHEMATOSUS
     Dosage: 48 MG, 1D
     Dates: start: 201201
  4. BELIMUMAB [Suspect]
     Active Substance: BELIMUMAB
     Indication: AUTOIMMUNE HEPATITIS
  5. ONEALFA [Concomitant]
     Active Substance: ALFACALCIDOL
     Indication: OSTEOPOROSIS
     Dosage: 0.5 ?G, 1D
  6. MEDROL [Suspect]
     Active Substance: METHYLPREDNISOLONE
     Dosage: 48 MG, 1D
     Route: 048
     Dates: start: 20180822, end: 20180905
  7. MEDROL [Suspect]
     Active Substance: METHYLPREDNISOLONE
     Dosage: 36 MG, 1D
     Route: 048
     Dates: start: 20180906, end: 20181004
  8. CELLCEPT [Suspect]
     Active Substance: MYCOPHENOLATE MOFETIL\MYCOPHENOLATE MOFETIL HYDROCHLORIDE
     Indication: SYSTEMIC LUPUS ERYTHEMATOSUS
     Dosage: 2000 MG, 1D
     Dates: start: 20140626, end: 20190110
  9. BELIMUMAB [Suspect]
     Active Substance: BELIMUMAB
     Indication: SYSTEMIC LUPUS ERYTHEMATOSUS
     Dosage: 10 MG/KG, EVERY OTHER WEEK
     Route: 041
     Dates: start: 20180822, end: 20180905
  10. METHYLPREDNISOLONE. [Concomitant]
     Active Substance: METHYLPREDNISOLONE
  11. TACROLIMUS. [Suspect]
     Active Substance: TACROLIMUS
     Indication: SYSTEMIC LUPUS ERYTHEMATOSUS
     Dosage: 4 MG, 1D
     Dates: start: 20130507, end: 20190110

REACTIONS (3)
  - Pulmonary nocardiosis [Recovered/Resolved]
  - Product use in unapproved indication [Unknown]
  - Off label use [Unknown]

NARRATIVE: CASE EVENT DATE: 20180822
